FAERS Safety Report 7910799-5 (Version None)
Quarter: 2011Q4

REPORT INFORMATION
  Report Type: 
  Country: None (occurrence: None)
  Receive Date: 20111113
  Receipt Date: 20111109
  Transmission Date: 20120403
  Serious: Yes (Hospitalization)
  Sender: FDA-Public Use
  Company Number: DE-BRISTOL-MYERS SQUIBB COMPANY-16081853

PATIENT
  Age: 77 Year
  Sex: Male
  Weight: 106 kg

DRUGS (4)
  1. TILIDINE [Concomitant]
     Indication: PAIN
     Route: 048
  2. DICLOFENAC SODIUM [Concomitant]
     Indication: PAIN
     Route: 048
  3. IPILIMUMAB [Suspect]
     Indication: MALIGNANT MELANOMA
     Route: 042
     Dates: start: 20110624, end: 20110826
  4. CYMBALTA [Concomitant]
     Indication: DEPRESSION
     Route: 048

REACTIONS (1)
  - PAIN IN EXTREMITY [None]
